FAERS Safety Report 24972969 (Version 2)
Quarter: 2025Q4

REPORT INFORMATION
  Report Type: Spontaneous
  Country: EU (occurrence: EU)
  Receive Date: 20250215
  Receipt Date: 20251128
  Transmission Date: 20260117
  Serious: Yes (Hospitalization, Other)
  Sender: AUROBINDO
  Company Number: EU-AFSSAPS-TS2025000102

PATIENT
  Age: 5 Year
  Sex: Female
  Weight: 19 kg

DRUGS (2)
  1. AMOXICILLIN [Suspect]
     Active Substance: AMOXICILLIN
     Indication: Ear infection
     Dosage: UNK
     Dates: start: 20250117, end: 20250122
  2. ACETAMINOPHEN [Suspect]
     Active Substance: ACETAMINOPHEN
     Indication: Pyrexia
     Dosage: 1 DOSAGE FORM, AS NECESSARY
     Dates: start: 202501, end: 202501

REACTIONS (2)
  - Intracranial pressure increased [Recovering/Resolving]
  - Optic neuritis [Recovering/Resolving]

NARRATIVE: CASE EVENT DATE: 20250122
